FAERS Safety Report 16649415 (Version 2)
Quarter: 2019Q3

REPORT INFORMATION
  Report Type: Spontaneous
  Country: CA (occurrence: CA)
  Receive Date: 20190730
  Receipt Date: 20190831
  Transmission Date: 20191004
  Serious: Yes (Other)
  Sender: FDA-Public Use
  Company Number: CA-TEVA-2019-CA-1084301

PATIENT
  Age: 101 Month
  Sex: Male

DRUGS (2)
  1. VINCRISTINE SULFATE. [Suspect]
     Active Substance: VINCRISTINE SULFATE
     Indication: ASTROCYTOMA, LOW GRADE
     Route: 065
  2. CARBOPLATIN. [Suspect]
     Active Substance: CARBOPLATIN
     Indication: ASTROCYTOMA, LOW GRADE
     Route: 065

REACTIONS (4)
  - Neuropathy peripheral [Unknown]
  - Toxicity to various agents [Unknown]
  - Cytopenia [Unknown]
  - Product use in unapproved indication [Unknown]
